FAERS Safety Report 5116872-1 (Version None)
Quarter: 2006Q3

REPORT INFORMATION
  Report Type: 
  Country: None (occurrence: None)
  Receive Date: 20060928
  Receipt Date: 20060912
  Transmission Date: 20061208
  Serious: Yes (Hospitalization)
  Sender: FDA-Public Use
  Company Number: 2006AP04267

PATIENT
  Age: 16018 Day
  Sex: Female

DRUGS (14)
  1. IRESSA [Suspect]
     Indication: BREAST CANCER
     Route: 048
     Dates: start: 20060628, end: 20060906
  2. IRESSA [Suspect]
     Route: 048
     Dates: start: 20060911
  3. EPIRUBICIN [Suspect]
     Indication: BREAST CANCER
     Dates: start: 20060628, end: 20060628
  4. EPIRUBICIN [Suspect]
     Dates: start: 20060719, end: 20060719
  5. EPIRUBICIN [Suspect]
     Dates: start: 20060809, end: 20060809
  6. EPIRUBICIN [Suspect]
     Dates: start: 20060830, end: 20060830
  7. CYCLOPHOSPHAMIDE [Suspect]
     Indication: BREAST CANCER
     Dates: start: 20060628, end: 20060628
  8. CYCLOPHOSPHAMIDE [Suspect]
     Dates: start: 20060719, end: 20060719
  9. CYCLOPHOSPHAMIDE [Suspect]
     Dates: start: 20060809, end: 20060809
  10. CYCLOPHOSPHAMIDE [Suspect]
     Dates: start: 20060830, end: 20060830
  11. SALICYLIC ACID [Concomitant]
     Indication: HEADACHE
     Dosage: }1MTH PRIOR TO STUDY START
     Route: 048
  12. METOCLOPRAMIDE [Concomitant]
     Indication: PROPHYLAXIS OF NAUSEA AND VOMITING
     Route: 048
     Dates: start: 20060711
  13. ONDANSETRON [Concomitant]
     Indication: NAUSEA
     Route: 048
     Dates: start: 20060830
  14. PREDNISOLONE [Concomitant]
     Indication: NAUSEA
     Route: 048
     Dates: start: 20060830

REACTIONS (3)
  - FEBRILE NEUTROPENIA [None]
  - SKIN INFECTION [None]
  - STAPHYLOCOCCAL INFECTION [None]
